FAERS Safety Report 18928625 (Version 2)
Quarter: 2021Q1

REPORT INFORMATION
  Report Type: Report from Study
  Country: None (occurrence: CA)
  Receive Date: 20210223
  Receipt Date: 20210325
  Transmission Date: 20210420
  Serious: Yes (Hospitalization, Other)
  Sender: FDA-Public Use
  Company Number: CA-ABBVIE-21K-028-3781824-00

PATIENT
  Age: 58 Year
  Sex: Female

DRUGS (2)
  1. RINVOQ [Suspect]
     Active Substance: UPADACITINIB
     Route: 048
  2. RINVOQ [Suspect]
     Active Substance: UPADACITINIB
     Indication: RHEUMATOID ARTHRITIS
     Route: 048

REACTIONS (7)
  - Transfusion [Unknown]
  - Mineral supplementation [Unknown]
  - Breast swelling [Unknown]
  - Skin warm [Unknown]
  - Red blood cell count decreased [Unknown]
  - Anaemia [Unknown]
  - Breast pain [Unknown]

NARRATIVE: CASE EVENT DATE: 202101
